FAERS Safety Report 4822098-9 (Version None)
Quarter: 2005Q4

REPORT INFORMATION
  Report Type: 
  Country: None (occurrence: None)
  Receive Date: 20051103
  Receipt Date: 20051012
  Transmission Date: 20060501
  Serious: Yes (Death, Hospitalization)
  Sender: FDA-Public Use
  Company Number: EWC050544058

PATIENT
  Age: 72 Year
  Sex: Male

DRUGS (9)
  1. ALIMTA [Suspect]
     Indication: LUNG CARCINOMA CELL TYPE UNSPECIFIED STAGE IV
     Dosage: 500 MG/ 1 OTHER
     Route: 050
     Dates: start: 20050118
  2. SELOKEN SLOW RELEASE PLUS [Concomitant]
  3. SIMVASTATIN HEXAL (SIMVASTATIN) [Concomitant]
  4. BETAPRED [Concomitant]
  5. BEHEPAN (CYANOCOBALAMIN) [Concomitant]
  6. MONOKET [Concomitant]
  7. VITAPLEX [Concomitant]
  8. ASPIRIN [Concomitant]
  9. BETAMETHASONE [Concomitant]

REACTIONS (8)
  - ATRIAL FIBRILLATION [None]
  - CHILLS [None]
  - INFECTION [None]
  - MALAISE [None]
  - NEOPLASM MALIGNANT [None]
  - PYREXIA [None]
  - RESPIRATORY DISTRESS [None]
  - WHITE BLOOD CELL COUNT DECREASED [None]
